FAERS Safety Report 9350526 (Version 1)
Quarter: 2013Q2

REPORT INFORMATION
  Report Type: Spontaneous
  Country: CN (occurrence: CN)
  Receive Date: 20130617
  Receipt Date: 20130617
  Transmission Date: 20140414
  Serious: Yes (Hospitalization)
  Sender: FDA-Public Use
  Company Number: CN-JNJFOC-20130602729

PATIENT
  Age: 29 Year
  Sex: Female
  Weight: 54 kg

DRUGS (5)
  1. TYLENOL COLD [Suspect]
     Indication: OROPHARYNGEAL PAIN
     Route: 048
     Dates: start: 20120514, end: 20120517
  2. TYLENOL COLD [Suspect]
     Indication: NASAL OBSTRUCTION
     Route: 048
     Dates: start: 20120514, end: 20120517
  3. TRADITIONAL CHINESE MEDICINE [Suspect]
     Indication: ACNE
     Route: 048
     Dates: start: 20120512, end: 20120518
  4. ANMABENMEI [Suspect]
     Indication: OROPHARYNGEAL PAIN
     Route: 048
     Dates: start: 20120514, end: 20120517
  5. ANMABENMEI [Suspect]
     Indication: NASAL CONGESTION
     Route: 048
     Dates: start: 20120514, end: 20120517

REACTIONS (1)
  - Erythema multiforme [Recovering/Resolving]
